FAERS Safety Report 9680231 (Version 1)
Quarter: 2013Q4

REPORT INFORMATION
  Report Type: Spontaneous
  Country: US (occurrence: US)
  Receive Date: 20131111
  Receipt Date: 20131111
  Transmission Date: 20140711
  Serious: No
  Sender: FDA-Public Use
  Company Number: US-009507513-1310USA013064

PATIENT
  Age: 39 Year
  Sex: Male

DRUGS (3)
  1. VICTRELIS [Suspect]
     Indication: HEPATITIS C
     Dosage: UNK
     Route: 048
     Dates: start: 20131024
  2. PEGINTRON [Suspect]
  3. REBETOL [Suspect]
     Route: 048

REACTIONS (1)
  - Haematemesis [Unknown]
